FAERS Safety Report 9200801 (Version 1)
Quarter: 2013Q1

REPORT INFORMATION
  Report Type: Spontaneous
  Country: GB (occurrence: None)
  Receive Date: 20130327
  Receipt Date: 20130327
  Transmission Date: 20140127
  Serious: Yes (Other)
  Sender: FDA-Public Use
  Company Number: 2013-05049

PATIENT
  Age: 38 Year
  Sex: Male
  Weight: 70 kg

DRUGS (5)
  1. MIRTAZAPINE [Suspect]
     Indication: DEPRESSION
  2. DIAZEPAM (DIAZEPAM) [Suspect]
     Indication: PRODUCT USED FOR UNKNOWN INDICATION
  3. VICTRELIS [Suspect]
     Route: 048
  4. NITRAZEPAM (NITRAZEPAM) [Suspect]
  5. OPIUM [Suspect]

REACTIONS (4)
  - Hyperhidrosis [None]
  - Tachycardia [None]
  - Drug interaction [None]
  - Withdrawal syndrome [None]
